FAERS Safety Report 4548852-9 (Version None)
Quarter: 2004Q4

REPORT INFORMATION
  Report Type: 
  Country: None (occurrence: None)
  Receive Date: 20041227
  Receipt Date: 20041129
  Transmission Date: 20050328
  Serious: No
  Sender: FDA-Public Use
  Company Number: 04P-163-0281507-00

PATIENT
  Age: 61 Year
  Sex: Female
  Weight: 62.5964 kg

DRUGS (14)
  1. HUMIRA [Suspect]
     Indication: RHEUMATOID ARTHRITIS
     Dosage: 40 MG, 1 IN 2 WK, SUBCUTANEOUS
     Route: 058
     Dates: start: 20041001
  2. HUMIRA [Suspect]
     Indication: SJOGREN'S SYNDROME
     Dosage: 40 MG, 1 IN 2 WK, SUBCUTANEOUS
     Route: 058
     Dates: start: 20041001
  3. ESOMEPRAZOLE [Concomitant]
  4. MODURETIC 5-50 [Concomitant]
  5. NEPHEDRINE [Concomitant]
  6. HYDROXYCHLOROQUINE PHOSPHATE [Concomitant]
  7. FOLINIC ACID [Concomitant]
  8. METHOTREXATE [Concomitant]
  9. PREDNISONE [Concomitant]
  10. FLUTOPRAZEPAM [Concomitant]
  11. FLUTICASONE PROPIONATE [Concomitant]
  12. LOPERAMIDE HCL [Concomitant]
  13. ALBUTEROL [Concomitant]
  14. MULTIVITAMIN [Concomitant]

REACTIONS (1)
  - CORNEAL ABRASION [None]
